FAERS Safety Report 24565334 (Version 1)
Quarter: 2024Q4

REPORT INFORMATION
  Report Type: Spontaneous
  Country: US (occurrence: None)
  Receive Date: 20241029
  Receipt Date: 20241029
  Transmission Date: 20250114
  Serious: Yes (Disabling)
  Sender: Public
  Company Number: None

PATIENT
  Age: 50 Year
  Sex: Female

DRUGS (4)
  1. TERBINAFINE [Suspect]
     Active Substance: TERBINAFINE\TERBINAFINE HYDROCHLORIDE
     Indication: Fungal skin infection
     Dosage: OTHER QUANTITY : 1 TABLET(S);?FREQUENCY : 3 TIMES A DAY;?
     Route: 048
     Dates: start: 20241002, end: 20241018
  2. LOSARTAN [Concomitant]
     Active Substance: LOSARTAN
  3. LEVOXYL [Concomitant]
     Active Substance: LEVOTHYROXINE SODIUM
  4. toasting [Concomitant]

REACTIONS (12)
  - Paraesthesia [None]
  - Hypoaesthesia [None]
  - Hypoaesthesia [None]
  - Hypoaesthesia [None]
  - Hypoaesthesia [None]
  - Musculoskeletal disorder [None]
  - Pain in extremity [None]
  - Pain in extremity [None]
  - Therapy cessation [None]
  - Vasculitis [None]
  - Impaired work ability [None]
  - Product complaint [None]

NARRATIVE: CASE EVENT DATE: 20241018
